FAERS Safety Report 5024196-6 (Version None)
Quarter: 2006Q2

REPORT INFORMATION
  Report Type: 
  Country: None (occurrence: None)
  Receive Date: 20060607
  Receipt Date: 20060524
  Transmission Date: 20061013
  Serious: Yes (Hospitalization)
  Sender: FDA-Public Use
  Company Number: 206493

PATIENT
  Age: 60 Year
  Sex: Female
  Weight: 77.7 kg

DRUGS (11)
  1. HERCEPTIN [Suspect]
     Indication: BREAST CANCER
     Dosage: SEE IMAGE
     Route: 042
     Dates: start: 20031222, end: 20040406
  2. HERCEPTIN [Suspect]
     Indication: BREAST CANCER
     Dosage: SEE IMAGE
     Route: 042
     Dates: start: 20031201, end: 20051215
  3. HERCEPTIN [Suspect]
     Indication: BREAST CANCER
     Dosage: SEE IMAGE
     Route: 042
     Dates: start: 20040414
  4. AMLODIPINE BESYLATE [Concomitant]
  5. BECLOMETASON INHAL.AER. (BECLOMETASONE DIPROPIONATE) [Concomitant]
  6. COMBIVENT INHALER (IPRATROPIUM BROMIDE, ALBUTEROL, ALBUTEROL SULFATE) [Concomitant]
  7. DIHYDROCODEINE (DIHYDROCODEINE BITARTRATE) [Concomitant]
  8. AMITRIPTYLINE HCL [Concomitant]
  9. BENDROFLUAZIDE (BENDROFLUMETHIAZIDE) [Concomitant]
  10. ASPIRIN [Concomitant]
  11. FUROSEMIDE [Concomitant]

REACTIONS (7)
  - CHRONIC OBSTRUCTIVE PULMONARY DISEASE [None]
  - MOUTH ULCERATION [None]
  - MYOCARDIAL ISCHAEMIA [None]
  - NEUTROPHIL COUNT INCREASED [None]
  - ORAL CANDIDIASIS [None]
  - PYREXIA [None]
  - SILENT MYOCARDIAL INFARCTION [None]
